FAERS Safety Report 6156845-3 (Version None)
Quarter: 2009Q2

REPORT INFORMATION
  Report Type: 
  Country: None (occurrence: None)
  Receive Date: 20090416
  Receipt Date: 20090404
  Transmission Date: 20091009
  Serious: Yes (Other)
  Sender: FDA-Public Use
  Company Number: DE-ELI_LILLY_AND_COMPANY-DE200904001250

PATIENT
  Sex: Female

DRUGS (2)
  1. CYMBALTA [Suspect]
     Dosage: 30 MG, DAILY (1/D)
  2. CYMBALTA [Suspect]
     Dosage: 30 MG, QOD

REACTIONS (11)
  - ABDOMINAL DISCOMFORT [None]
  - BACK PAIN [None]
  - DYSPEPSIA [None]
  - MYALGIA [None]
  - PAIN [None]
  - RENAL DISORDER [None]
  - SEASONAL ALLERGY [None]
  - THROAT IRRITATION [None]
  - URINARY RETENTION [None]
  - URINARY SEDIMENT PRESENT [None]
  - VERTIGO [None]
